FAERS Safety Report 6466781-0 (Version None)
Quarter: 2009Q4

REPORT INFORMATION
  Report Type: 
  Country: None (occurrence: None)
  Receive Date: 20091202
  Receipt Date: 20091123
  Transmission Date: 20100525
  Serious: Yes (Death, Hospitalization)
  Sender: FDA-Public Use
  Company Number: GB-ABBOTT-09P-167-0609047-00

PATIENT
  Age: 27 Year
  Sex: Male

DRUGS (8)
  1. ERYTHROMYCIN [Suspect]
     Indication: ECZEMA INFECTED
     Dosage: UNKNOWN
     Dates: end: 19790101
  2. FUCIDINE CAP [Suspect]
     Indication: ECZEMA INFECTED
     Dosage: UNKNOWN
     Dates: end: 19790101
  3. FUROSEMIDE [Concomitant]
     Indication: DRUG USE FOR UNKNOWN INDICATION
  4. METOLAZONE [Concomitant]
     Indication: DRUG USE FOR UNKNOWN INDICATION
  5. NITRAZEPAM [Concomitant]
     Indication: DRUG USE FOR UNKNOWN INDICATION
  6. PREDNISOLONE [Concomitant]
     Indication: DRUG USE FOR UNKNOWN INDICATION
  7. PREDNISOLONE [Concomitant]
     Route: 048
  8. TRIAMTERENE [Concomitant]
     Indication: DRUG USE FOR UNKNOWN INDICATION

REACTIONS (7)
  - DERMATITIS BULLOUS [None]
  - DIARRHOEA [None]
  - HEPATIC FAILURE [None]
  - PYREXIA [None]
  - RENAL FAILURE [None]
  - SEPSIS [None]
  - TOXIC SKIN ERUPTION [None]
